FAERS Safety Report 22141872 (Version 1)
Quarter: 2023Q1

REPORT INFORMATION
  Report Type: Spontaneous
  Country: PL (occurrence: None)
  Receive Date: 20230327
  Receipt Date: 20230327
  Transmission Date: 20230417
  Serious: Yes (Other)
  Sender: FDA-Public Use
  Company Number: 2023A069640

PATIENT
  Age: 50 Year
  Sex: Female

DRUGS (4)
  1. OLAPARIB [Suspect]
     Active Substance: OLAPARIB
     Indication: Breast cancer female
     Route: 048
     Dates: start: 20190802
  2. OLAPARIB [Suspect]
     Active Substance: OLAPARIB
     Indication: Breast cancer female
     Route: 048
     Dates: start: 20191008
  3. OLAPARIB [Suspect]
     Active Substance: OLAPARIB
     Indication: Breast cancer female
     Route: 048
     Dates: start: 20200124
  4. OLAPARIB [Suspect]
     Active Substance: OLAPARIB
     Indication: Breast cancer female
     Route: 048
     Dates: start: 20200124, end: 20201204

REACTIONS (10)
  - Metastases to liver [Unknown]
  - Metastases to lung [Unknown]
  - Hepatic cancer metastatic [Unknown]
  - Metastases to spine [Unknown]
  - Malignant neoplasm progression [Unknown]
  - Haematotoxicity [Unknown]
  - Anaemia [Unknown]
  - Pulmonary mass [Unknown]
  - Pleural effusion [Unknown]
  - Neutropenia [Unknown]

NARRATIVE: CASE EVENT DATE: 20191004
